FAERS Safety Report 13903532 (Version 3)
Quarter: 2017Q3

REPORT INFORMATION
  Report Type: Spontaneous
  Country: BR (occurrence: BR)
  Receive Date: 20170824
  Receipt Date: 20170831
  Transmission Date: 20171127
  Serious: Yes (Death, Hospitalization, Other)
  Sender: FDA-Public Use
  Company Number: BR-PFIZER INC-2017364852

PATIENT
  Age: 61 Year
  Sex: Male
  Weight: 65 kg

DRUGS (6)
  1. SERTRALINE [Concomitant]
     Active Substance: SERTRALINE HYDROCHLORIDE
     Dosage: 50 MG, UNK
     Route: 065
  2. PANTOPRAZOLE [Concomitant]
     Active Substance: PANTOPRAZOLE
     Dosage: 20 MG, UNK
     Route: 065
  3. CARVEDILOL. [Concomitant]
     Active Substance: CARVEDILOL
     Dosage: 12.5 MG, UNK
     Route: 065
  4. DIGESAN [Concomitant]
     Active Substance: BROMOPRIDE
     Dosage: 10 MG, UNK
     Route: 065
  5. GEMCIT [Suspect]
     Active Substance: GEMCITABINE HYDROCHLORIDE
     Indication: PANCREATIC CARCINOMA
     Dosage: 1738 MG, UNK
     Route: 042
     Dates: start: 20170614
  6. ENALAPRIL /00574902/ [Concomitant]
     Active Substance: ENALAPRIL
     Dosage: 10 MG, UNK
     Route: 065

REACTIONS (9)
  - Metastases to liver [Unknown]
  - Hypotension [Unknown]
  - Diarrhoea [Fatal]
  - Pancreatic carcinoma [Unknown]
  - Biliary adenoma [Unknown]
  - Dehydration [Unknown]
  - Drug resistance [Unknown]
  - Febrile neutropenia [Fatal]
  - Electrolyte imbalance [Unknown]

NARRATIVE: CASE EVENT DATE: 20170622
